FAERS Safety Report 8288526-4 (Version None)
Quarter: 2012Q2

REPORT INFORMATION
  Report Type: 
  Country: None (occurrence: None)
  Receive Date: 20120416
  Receipt Date: 20120410
  Transmission Date: 20120825
  Serious: Yes (Other)
  Sender: FDA-Public Use
  Company Number: US-PFIZER INC-2011240904

PATIENT
  Sex: Female
  Weight: 58.503 kg

DRUGS (9)
  1. LIPITOR [Suspect]
     Indication: BLOOD CHOLESTEROL INCREASED
     Dosage: UNK
  2. LIPITOR [Suspect]
     Dosage: 80 MG, 1X/DAY
     Route: 048
     Dates: start: 20110101
  3. ATENOLOL [Concomitant]
     Dosage: UNK
  4. PLAVIX [Concomitant]
     Dosage: UNK
  5. GLIPIZIDE [Concomitant]
     Dosage: UNK
  6. LYRICA [Suspect]
     Dosage: 100 MG, AS NEEDED
     Route: 048
     Dates: start: 20110101
  7. METFORMIN [Concomitant]
     Dosage: UNK
  8. LYRICA [Suspect]
     Indication: PAIN
     Dosage: UNK
  9. LOSARTAN [Concomitant]
     Dosage: 25 MG, UNK

REACTIONS (17)
  - MUSCLE OPERATION [None]
  - SURGERY [None]
  - JOINT INJURY [None]
  - MALAISE [None]
  - PAIN IN EXTREMITY [None]
  - HYPOAESTHESIA [None]
  - NEPHROLITHIASIS [None]
  - BACK PAIN [None]
  - FEELING ABNORMAL [None]
  - PAIN [None]
  - COAGULOPATHY [None]
  - HYPERTENSION [None]
  - VENOUS THROMBOSIS [None]
  - CORONARY ARTERY DISEASE [None]
  - ARTERIAL THROMBOSIS [None]
  - POLLAKIURIA [None]
  - ASTHENIA [None]
